FAERS Safety Report 5305920-1 (Version None)
Quarter: 2007Q2

REPORT INFORMATION
  Report Type: 
  Country: None (occurrence: None)
  Receive Date: 20070424
  Receipt Date: 20070412
  Transmission Date: 20071010
  Serious: Yes (Other)
  Sender: FDA-Public Use
  Company Number: S200600447

PATIENT
  Age: 36 Year
  Sex: Female
  Weight: 32.1 kg

DRUGS (2)
  1. AMOXICILLIN [Suspect]
     Indication: INFECTION PROPHYLAXIS
     Route: 065
  2. LOXOPROFEN SODIUM [Concomitant]
     Indication: PAIN
     Route: 065

REACTIONS (14)
  - ALANINE AMINOTRANSFERASE INCREASED [None]
  - ASPARTATE AMINOTRANSFERASE INCREASED [None]
  - BLOOD ALKALINE PHOSPHATASE INCREASED [None]
  - BLOOD LACTATE DEHYDROGENASE INCREASED [None]
  - DEPRESSED LEVEL OF CONSCIOUSNESS [None]
  - EYE HAEMORRHAGE [None]
  - FACE INJURY [None]
  - FALL [None]
  - GAMMA-GLUTAMYLTRANSFERASE INCREASED [None]
  - HEPATIC FUNCTION ABNORMAL [None]
  - HYPOGLYCAEMIA [None]
  - INJURY [None]
  - JAW DISORDER [None]
  - SKIN LACERATION [None]
